FAERS Safety Report 9086466 (Version 1)
Quarter: 2013Q1

REPORT INFORMATION
  Report Type: Spontaneous
  Country: FR (occurrence: FR)
  Receive Date: 20130131
  Receipt Date: 20130131
  Transmission Date: 20140127
  Serious: Yes (Death, Hospitalization)
  Sender: FDA-Public Use
  Company Number: FR-PFIZER INC-2013033271

PATIENT
  Age: 68 Year
  Sex: Male

DRUGS (13)
  1. MEDROL [Suspect]
     Dosage: 100 MG
     Route: 048
     Dates: start: 20120904
  2. MEDROL [Suspect]
     Dosage: 120 MG
     Dates: start: 20121001, end: 20121001
  3. MEDROL [Suspect]
     Dosage: 240 MG
     Dates: start: 20121002, end: 20121003
  4. MEDROL [Suspect]
     Dosage: 100MG
     Dates: start: 20121004, end: 20121031
  5. LEVETIRACETAM [Suspect]
     Dosage: 500 MG DAILY
     Route: 048
     Dates: start: 20120904, end: 20121031
  6. TEMODAL [Suspect]
     Indication: MALIGNANT GLIOMA
     Dosage: 140 MG DAILY
     Route: 048
     Dates: start: 20120917, end: 20121025
  7. INEXIUM [Suspect]
     Dosage: 40MG DAILY
     Route: 048
     Dates: start: 20120904, end: 20121031
  8. GLYCEROTONE [Concomitant]
     Dosage: UNK
     Dates: start: 20120904
  9. DOLIPRANE [Concomitant]
     Dosage: 500MG, AS NEEDED
     Dates: start: 20120904
  10. MANNITOL [Concomitant]
     Dosage: 20%
     Route: 042
     Dates: start: 20121001, end: 20121003
  11. SODIUM CHLORIDE [Concomitant]
     Dosage: 0.9%
     Route: 042
     Dates: start: 20121001, end: 20121003
  12. FONX [Concomitant]
  13. SMECTA [Concomitant]
     Dosage: AS NEEDED

REACTIONS (1)
  - Mixed liver injury [Fatal]
